FAERS Safety Report 9941781 (Version 2)
Quarter: 2014Q1

REPORT INFORMATION
  Report Type: Report from Study
  Country: US (occurrence: US)
  Receive Date: 20140303
  Receipt Date: 20140303
  Transmission Date: 20141002
  Serious: Yes (Hospitalization)
  Sender: FDA-Public Use
  Company Number: US-ABBVIE-13P-163-1035296-00

PATIENT
  Age: 41 Year
  Sex: Female
  Weight: 83.99 kg

DRUGS (4)
  1. HUMIRA [Suspect]
     Indication: CROHN^S DISEASE
     Route: 058
     Dates: start: 201206, end: 201207
  2. CYMBALTA [Concomitant]
     Indication: DEPRESSION
     Dosage: UNKNOWN
  3. METHOCARBOMOL [Concomitant]
     Indication: PRODUCT USED FOR UNKNOWN INDICATION
     Dosage: UNKNOWN
  4. PROMETHAZINE [Concomitant]
     Indication: NAUSEA
     Dosage: UNKNOWN

REACTIONS (1)
  - Infection [Recovered/Resolved]
